FAERS Safety Report 15358358 (Version 6)
Quarter: 2019Q4

REPORT INFORMATION
  Report Type: Spontaneous
  Country: VE (occurrence: VE)
  Receive Date: 20180906
  Receipt Date: 20191028
  Transmission Date: 20200122
  Serious: Yes (Death, Hospitalization, Other)
  Sender: FDA-Public Use
  Company Number: VE-BAYER-2018-165844

PATIENT
  Age: 15 Year
  Sex: Male
  Weight: 48 kg

DRUGS (3)
  1. CISPLATIN. [Concomitant]
     Active Substance: CISPLATIN
     Indication: HEPATOCELLULAR CARCINOMA
     Dosage: 100 MG D1
     Dates: start: 201711, end: 201803
  2. DOXORUBICIN [Concomitant]
     Active Substance: DOXORUBICIN
     Indication: HEPATOCELLULAR CARCINOMA
     Dosage: 40 MG D2, D3
     Dates: start: 201710, end: 201803
  3. NEXAVAR [Suspect]
     Active Substance: SORAFENIB
     Indication: HEPATOCELLULAR CARCINOMA
     Dosage: 400 MG, QD
     Dates: start: 201711, end: 201803

REACTIONS (22)
  - Aortic disorder [None]
  - Abdominal distension [None]
  - Hepatocellular carcinoma [Fatal]
  - Hepatocellular carcinoma [None]
  - Metastases to retroperitoneum [None]
  - Palliative care [None]
  - Hepatic function abnormal [None]
  - Product administered to patient of inappropriate age [None]
  - Confusional state [None]
  - Encephalopathy [None]
  - General physical health deterioration [None]
  - Product availability issue [None]
  - Pruritus [None]
  - Vomiting [None]
  - Multiple organ dysfunction syndrome [Fatal]
  - Liver disorder [None]
  - Jaundice [None]
  - Hepatocellular carcinoma [None]
  - Abdominal pain [None]
  - Lung disorder [None]
  - Ascites [None]
  - Off label use [None]

NARRATIVE: CASE EVENT DATE: 2018
